FAERS Safety Report 9218405 (Version 2)
Quarter: 2014Q1

REPORT INFORMATION
  Report Type: Spontaneous
  Country: US (occurrence: US)
  Receive Date: 20130409
  Receipt Date: 20140112
  Transmission Date: 20141002
  Serious: No
  Sender: FDA-Public Use
  Company Number: US-009507513-1304USA002358

PATIENT
  Age: 66 Year
  Sex: Female
  Weight: 68.27 kg

DRUGS (3)
  1. ISENTRESS [Suspect]
     Indication: HIV INFECTION
     Dosage: 400 MG, BID
     Route: 048
     Dates: start: 20130313, end: 20130404
  2. ATAZANAVIR [Concomitant]
  3. RITONAVIR [Concomitant]

REACTIONS (2)
  - Musculoskeletal pain [Recovered/Resolved]
  - Neck pain [Recovered/Resolved]
